FAERS Safety Report 11196587 (Version 1)
Quarter: 2015Q2

REPORT INFORMATION
  Report Type: Spontaneous
  Country: CH (occurrence: FR)
  Receive Date: 20150617
  Receipt Date: 20150617
  Transmission Date: 20150821
  Serious: Yes (Other)
  Sender: FDA-Public Use
  Company Number: CH-LPDUSPRD-20150432

PATIENT
  Age: 50 Year
  Sex: Female

DRUGS (2)
  1. TAXOTERE [Suspect]
     Active Substance: DOCETAXEL
     Dosage: DOSE NOT PROVIDED
     Route: 042
     Dates: start: 20150320, end: 20150410
  2. FERINJECT [Suspect]
     Active Substance: FERRIC CARBOXYMALTOSE
     Dosage: DOSE NOT PROVIDED
     Route: 042
     Dates: start: 20150410, end: 20150410

REACTIONS (1)
  - Mixed liver injury [Unknown]

NARRATIVE: CASE EVENT DATE: 20150502
